FAERS Safety Report 8986321 (Version 1)
Quarter: 2012Q4

REPORT INFORMATION
  Report Type: Spontaneous
  Country: US (occurrence: None)
  Receive Date: 20121219
  Receipt Date: 20121219
  Transmission Date: 20130627
  Serious: No
  Sender: FDA-Public Use
  Company Number: None

PATIENT
  Age: 63 Year
  Sex: Female
  Weight: 55.34 kg

DRUGS (4)
  1. HYDROXYCHLOROQUINE [Suspect]
     Indication: SJOGREN^S SYNDROME
     Dosage: 200mg  BID oral
Sept., Oct 2012,  Nov. 2012
     Route: 048
     Dates: start: 201209, end: 201210
  2. HYDROXYCHLOROQUINE [Suspect]
     Indication: UNSPECIFIED INFLAMMATORY POLYARTHROPATHY
     Dosage: 200mg  BID oral
Sept., Oct 2012,  Nov. 2012
     Route: 048
     Dates: start: 201209, end: 201210
  3. HYDROXYCHLOROQUINE [Suspect]
     Indication: SJOGREN^S SYNDROME
     Dates: start: 201211
  4. HYDROXYCHLOROQUINE [Suspect]
     Indication: UNSPECIFIED INFLAMMATORY POLYARTHROPATHY
     Dates: start: 201211

REACTIONS (1)
  - Rash pruritic [None]
